FAERS Safety Report 4537432-7 (Version None)
Quarter: 2004Q4

REPORT INFORMATION
  Report Type: 
  Country: None (occurrence: None)
  Receive Date: 20041216
  Receipt Date: 20040504
  Transmission Date: 20050328
  Serious: Yes (Other)
  Sender: FDA-Public Use
  Company Number: HQWYE717205MAY04

PATIENT
  Age: 56 Year
  Sex: Female
  Weight: 90.8 kg

DRUGS (17)
  1. EFFEXOR XR [Suspect]
     Indication: ANXIETY
     Dosage: 37.5 MG, ORAL; SEE IMAGE
     Route: 048
     Dates: start: 20040101, end: 20040101
  2. EFFEXOR XR [Suspect]
     Indication: DEPRESSION
     Dosage: 37.5 MG, ORAL; SEE IMAGE
     Route: 048
     Dates: start: 20040101, end: 20040101
  3. EFFEXOR XR [Suspect]
     Indication: ANXIETY
     Dosage: 37.5 MG, ORAL; SEE IMAGE
     Route: 048
     Dates: start: 20040201, end: 20040101
  4. EFFEXOR XR [Suspect]
     Indication: DEPRESSION
     Dosage: 37.5 MG, ORAL; SEE IMAGE
     Route: 048
     Dates: start: 20040201, end: 20040101
  5. EFFEXOR XR [Suspect]
     Indication: ANXIETY
     Dosage: 37.5 MG, ORAL; SEE IMAGE
     Route: 048
     Dates: start: 20040101, end: 20040502
  6. EFFEXOR XR [Suspect]
     Indication: DEPRESSION
     Dosage: 37.5 MG, ORAL; SEE IMAGE
     Route: 048
     Dates: start: 20040101, end: 20040502
  7. VERAPAMIL [Concomitant]
  8. MOBIC [Concomitant]
  9. ACTOS [Concomitant]
  10. TIZANIDINE (TIZANIDINE) [Concomitant]
  11. VICODIN [Concomitant]
  12. AMBIEN [Concomitant]
  13. FISH (FISH OIL) [Concomitant]
  14. CALCIUM (CALCIUM) [Concomitant]
  15. VITAMIN E [Concomitant]
  16. LANTUS [Concomitant]
  17. HUMALOG [Concomitant]

REACTIONS (8)
  - ANGER [None]
  - DRUG WITHDRAWAL SYNDROME [None]
  - HEADACHE [None]
  - MALAISE [None]
  - MOOD SWINGS [None]
  - PALPITATIONS [None]
  - PARANOIA [None]
  - SUICIDAL IDEATION [None]
